FAERS Safety Report 8220045-3 (Version None)
Quarter: 2012Q1

REPORT INFORMATION
  Report Type: 
  Country: None (occurrence: None)
  Receive Date: 20120320
  Receipt Date: 20120305
  Transmission Date: 20120608
  Serious: Yes (Other)
  Sender: FDA-Public Use
  Company Number: PT-ROCHE-1048289

PATIENT
  Sex: Female

DRUGS (9)
  1. SALMETEROL [Concomitant]
  2. TIOTROPIUM BROMIDE [Concomitant]
  3. MONTELUKAST [Concomitant]
  4. DEFLAZACORT [Concomitant]
  5. AMINOPHYLLINE [Concomitant]
  6. MOMETASONE FUROATE [Concomitant]
  7. FLUTICASONE FUROATE [Concomitant]
  8. OMEPRAZOLE [Concomitant]
  9. XOLAIR [Suspect]
     Indication: ASTHMA
     Route: 065
     Dates: start: 20080209, end: 20110511

REACTIONS (2)
  - DRUG INEFFECTIVE [None]
  - ROSACEA [None]
